FAERS Safety Report 6072280-0 (Version None)
Quarter: 2009Q1

REPORT INFORMATION
  Report Type: 
  Country: None (occurrence: None)
  Receive Date: 20090206
  Receipt Date: 20090206
  Transmission Date: 20090719
  Serious: Yes (Hospitalization)
  Sender: FDA-Public Use
  Company Number: None

PATIENT
  Age: 8 Year
  Sex: Male
  Weight: 45.4 kg

DRUGS (2)
  1. SINGULAIR [Suspect]
     Indication: ASTHMA
     Dosage: 5 MG QAM PO, 3 TO 4 YEARS
     Route: 048
  2. SINGULAIR [Suspect]
     Indication: MULTIPLE ALLERGIES
     Dosage: 5 MG QAM PO, 3 TO 4 YEARS
     Route: 048

REACTIONS (2)
  - HEPATITIS ACUTE [None]
  - JAUNDICE CHOLESTATIC [None]
